FAERS Safety Report 17521606 (Version 3)
Quarter: 2020Q2

REPORT INFORMATION
  Report Type: Spontaneous
  Country: US (occurrence: US)
  Receive Date: 20200310
  Receipt Date: 20200624
  Transmission Date: 20200713
  Serious: Yes (Other)
  Sender: FDA-Public Use
  Company Number: US-PFIZER INC-2020104411

PATIENT
  Age: 64 Year
  Sex: Female
  Weight: 49.89 kg

DRUGS (2)
  1. IBRANCE [Suspect]
     Active Substance: PALBOCICLIB
     Dosage: 125 MG
  2. IBRANCE [Suspect]
     Active Substance: PALBOCICLIB
     Dosage: 75 MG

REACTIONS (12)
  - Urticaria [Not Recovered/Not Resolved]
  - Oral candidiasis [Recovered/Resolved]
  - Diarrhoea [Recovered/Resolved]
  - Blood count abnormal [Recovered/Resolved]
  - Nausea [Recovered/Resolved]
  - Vomiting [Recovered/Resolved]
  - Fatigue [Recovered/Resolved]
  - Weight decreased [Recovered/Resolved]
  - Impaired driving ability [Recovered/Resolved]
  - Viral infection [Unknown]
  - Epistaxis [Recovered/Resolved]
  - Gait disturbance [Unknown]
